FAERS Safety Report 7578635-7 (Version None)
Quarter: 2011Q2

REPORT INFORMATION
  Report Type: 
  Country: None (occurrence: None)
  Receive Date: 20110628
  Receipt Date: 20110615
  Transmission Date: 20111010
  Serious: Yes (Life-Threatening)
  Sender: FDA-Public Use
  Company Number: DE-MYLANLABS-2011S1012296

PATIENT
  Age: 24 Year
  Sex: Female

DRUGS (3)
  1. MIRTAZAPINE [Suspect]
     Indication: DEPRESSION
     Route: 048
     Dates: start: 20101101, end: 20101117
  2. METAMIZOLE [Suspect]
     Indication: PRODUCT USED FOR UNKNOWN INDICATION
     Route: 048
     Dates: start: 20101101
  3. PROMETHAZINE [Suspect]
     Indication: PRODUCT USED FOR UNKNOWN INDICATION
     Route: 048

REACTIONS (11)
  - LEUKOPENIA [None]
  - ABDOMINAL PAIN [None]
  - CARDIOVASCULAR DISORDER [None]
  - NAUSEA [None]
  - SEPSIS [None]
  - VOMITING [None]
  - DIARRHOEA [None]
  - HYPERSENSITIVITY [None]
  - PYREXIA [None]
  - CHILLS [None]
  - AGRANULOCYTOSIS [None]
